FAERS Safety Report 13627211 (Version 1)
Quarter: 2017Q2

REPORT INFORMATION
  Report Type: Spontaneous
  Country: PR (occurrence: PR)
  Receive Date: 20170531
  Receipt Date: 20170531
  Transmission Date: 20170830
  Serious: Yes (Hospitalization)
  Sender: FDA-Public Use
  Company Number: PR-ASTELLAS-1463391

PATIENT
  Sex: Female

DRUGS (1)
  1. TARCEVA [Suspect]
     Active Substance: ERLOTINIB HYDROCHLORIDE
     Indication: LUNG CANCER METASTATIC
     Route: 048

REACTIONS (5)
  - Asthenia [Unknown]
  - Feeding disorder [Recovering/Resolving]
  - Vomiting [Recovered/Resolved]
  - Nausea [Unknown]
  - Dehydration [Recovered/Resolved]
